FAERS Safety Report 4550418-1 (Version None)
Quarter: 2005Q1

REPORT INFORMATION
  Report Type: 
  Country: None (occurrence: None)
  Receive Date: 20050112
  Receipt Date: 20041027
  Transmission Date: 20050727
  Serious: Yes (Hospitalization, Other)
  Sender: FDA-Public Use
  Company Number: US-GLAXOSMITHKLINE-A0531563A

PATIENT
  Age: 56 Year
  Sex: Male

DRUGS (2)
  1. LAMICTAL [Suspect]
     Indication: BIPOLAR DISORDER
     Route: 048
  2. XANAX [Concomitant]

REACTIONS (6)
  - COUGH [None]
  - HEPATIC ENZYME INCREASED [None]
  - LIFE SUPPORT [None]
  - NATURAL KILLER-CELL LEUKAEMIA [None]
  - PLATELET COUNT DECREASED [None]
  - PYREXIA [None]
